FAERS Safety Report 22636504 (Version 2)
Quarter: 2023Q4

REPORT INFORMATION
  Report Type: Spontaneous
  Country: US (occurrence: US)
  Receive Date: 20230623
  Receipt Date: 20231010
  Transmission Date: 20240109
  Serious: No
  Sender: FDA-Public Use
  Company Number: US-PFIZER INC-PV202300109704

PATIENT
  Age: 68 Year

DRUGS (1)
  1. TOVIAZ [Suspect]
     Active Substance: FESOTERODINE FUMARATE
     Indication: Stress urinary incontinence
     Dosage: 4 MG, 1X/DAY
     Route: 048

REACTIONS (1)
  - Memory impairment [Unknown]
